FAERS Safety Report 4390158-5 (Version None)
Quarter: 2004Q2

REPORT INFORMATION
  Report Type: 
  Country: None (occurrence: None)
  Receive Date: 20040630
  Receipt Date: 20040618
  Transmission Date: 20050107
  Serious: Yes (Other)
  Sender: FDA-Public Use
  Company Number: 200410464BCA

PATIENT
  Age: 66 Year
  Sex: Female

DRUGS (5)
  1. ASPIRIN [Suspect]
     Dosage: 81 MG, TOTAL DAILY, ORAL
     Route: 048
  2. HEPARIN [Suspect]
     Dosage: UNK
  3. LIPITOR [Concomitant]
  4. METOPROLOL [Concomitant]
  5. NITROGLYN 2% OINTMENT [Concomitant]

REACTIONS (3)
  - CEREBROVASCULAR DISORDER [None]
  - HEADACHE [None]
  - HEMIPLEGIA [None]
